FAERS Safety Report 19517642 (Version 1)
Quarter: 2021Q3

REPORT INFORMATION
  Report Type: Spontaneous
  Country: GB (occurrence: GB)
  Receive Date: 20210712
  Receipt Date: 20210712
  Transmission Date: 20211014
  Serious: Yes (Other)
  Sender: FDA-Public Use
  Company Number: GB-ABBVIE-21K-167-3979785-00

PATIENT
  Age: 37 Year
  Sex: Female

DRUGS (3)
  1. HUMIRA [Suspect]
     Active Substance: ADALIMUMAB
     Indication: PRODUCT USED FOR UNKNOWN INDICATION
     Route: 065
  2. COSENTYX [Suspect]
     Active Substance: SECUKINUMAB
     Dosage: 300 MG, QMO
     Route: 058
     Dates: start: 20210413, end: 2021
  3. COSENTYX [Suspect]
     Active Substance: SECUKINUMAB
     Indication: PSORIATIC ARTHROPATHY
     Dosage: 150 MG (WEEK 0,1,2,3,4: 300MG. THEN 300MG MONTHLY)
     Route: 065

REACTIONS (14)
  - Psoriasis [Unknown]
  - Rash [Unknown]
  - Injection related reaction [Unknown]
  - Pruritus [Unknown]
  - Blister [Unknown]
  - Speech disorder [Unknown]
  - Lethargy [Unknown]
  - Alopecia [Unknown]
  - Contusion [Unknown]
  - Skin irritation [Unknown]
  - Drug ineffective [Unknown]
  - Skin burning sensation [Unknown]
  - Scar [Unknown]
  - Hypersensitivity [Unknown]
